FAERS Safety Report 7848624-3 (Version None)
Quarter: 2011Q4

REPORT INFORMATION
  Report Type: 
  Country: None (occurrence: None)
  Receive Date: 20111026
  Receipt Date: 20111018
  Transmission Date: 20120403
  Serious: Yes (Hospitalization)
  Sender: FDA-Public Use
  Company Number: US-BIOGENIDEC-2011BI032817

PATIENT
  Age: 61 Year
  Sex: Female

DRUGS (1)
  1. TYSABRI [Suspect]
     Indication: MULTIPLE SCLEROSIS
     Route: 042
     Dates: start: 20100226

REACTIONS (5)
  - NEUROGENIC BLADDER [None]
  - GAIT DISTURBANCE [None]
  - TEMPERATURE INTOLERANCE [None]
  - MUSCULAR WEAKNESS [None]
  - ESCHERICHIA INFECTION [None]
